FAERS Safety Report 8058503-7 (Version None)
Quarter: 2012Q1

REPORT INFORMATION
  Report Type: 
  Country: None (occurrence: None)
  Receive Date: 20120120
  Receipt Date: 20120117
  Transmission Date: 20120608
  Serious: Yes (Other)
  Sender: FDA-Public Use
  Company Number: US-PFIZER INC-2012014159

PATIENT
  Sex: Female
  Weight: 107 kg

DRUGS (4)
  1. SIMVASTATIN [Concomitant]
     Indication: BLOOD CHOLESTEROL INCREASED
     Dosage: UNK
  2. GEODON [Suspect]
     Indication: BIPOLAR DISORDER
     Dosage: 40 MG, 2X/DAY
     Dates: start: 19950101
  3. METFORMIN [Concomitant]
     Indication: DIABETES MELLITUS
     Dosage: UNK, 2X/DAY
  4. LISINOPRIL [Concomitant]
     Indication: HYPERTENSION
     Dosage: HALF OF 5MG

REACTIONS (1)
  - MULTIPLE SCLEROSIS [None]
